FAERS Safety Report 8583220-4 (Version None)
Quarter: 2012Q3

REPORT INFORMATION
  Report Type: 
  Country: None (occurrence: None)
  Receive Date: 20120809
  Receipt Date: 20120801
  Transmission Date: 20120928
  Serious: Yes (Hospitalization)
  Sender: FDA-Public Use
  Company Number: US-ACTELION-A-US2012-67781

PATIENT
  Age: 76 Year
  Sex: Female

DRUGS (3)
  1. TRACLEER [Suspect]
     Indication: PULMONARY ARTERIAL HYPERTENSION
     Dosage: UNK
     Route: 048
     Dates: start: 20120604
  2. ADCIRCA [Concomitant]
  3. PLAVIX [Concomitant]

REACTIONS (4)
  - DIALYSIS [None]
  - RENAL DISORDER [None]
  - BLOOD COUNT ABNORMAL [None]
  - RENAL FAILURE [None]
